FAERS Safety Report 8841013 (Version 1)
Quarter: 2012Q4

REPORT INFORMATION
  Report Type: 
  Country: US (occurrence: US)
  Receive Date: 20121015
  Receipt Date: 20121015
  Transmission Date: 20130627
  Serious: No
  Sender: FDA-Public Use
  Company Number: US-FOUGERA-2012FO000269

PATIENT
  Age: 43 Year
  Sex: Male
  Weight: 77.11 kg

DRUGS (1)
  1. BETAMETHASONE DIPROPIONATE [Suspect]
     Indication: FUNGAL INFECTION
     Route: 061
     Dates: end: 2011

REACTIONS (3)
  - Energy increased [Recovered/Resolved]
  - Anger [Recovered/Resolved]
  - Off label use [Recovered/Resolved]
